FAERS Safety Report 6112923-6 (Version None)
Quarter: 2009Q1

REPORT INFORMATION
  Report Type: 
  Country: None (occurrence: None)
  Receive Date: 20090312
  Receipt Date: 20090306
  Transmission Date: 20090719
  Serious: Yes (Death, Life-Threatening, Hospitalization, Disabling, Other)
  Sender: FDA-Public Use
  Company Number: PHHY2008JP32362

PATIENT
  Sex: Male
  Weight: 60 kg

DRUGS (5)
  1. GLEEVEC [Suspect]
     Indication: GASTROINTESTINAL STROMAL TUMOUR
     Dosage: 400 MG/DAY
     Route: 048
     Dates: start: 20080818, end: 20081112
  2. GASTER [Concomitant]
     Dosage: 40 MG/DAY
     Route: 048
     Dates: start: 20080818, end: 20081112
  3. GASTER [Concomitant]
     Dosage: 40MG/DAY
     Route: 048
  4. PROMAC [Concomitant]
     Dosage: 1 G/DAY
     Route: 048
     Dates: start: 20080919, end: 20081112
  5. LASIX [Concomitant]
     Indication: PLEURAL EFFUSION
     Dosage: 20 MG/DAY
     Route: 048
     Dates: start: 20081014, end: 20081112

REACTIONS (12)
  - ABDOMINAL PAIN [None]
  - FLUID RETENTION [None]
  - GASTROINTESTINAL PERFORATION [None]
  - LIVER DISORDER [None]
  - MEDICAL DEVICE IMPLANTATION [None]
  - OEDEMA [None]
  - PERICARDIAL EFFUSION [None]
  - PERITONITIS [None]
  - PLEURAL EFFUSION [None]
  - RENAL DISORDER [None]
  - SURGERY [None]
  - TUMOUR NECROSIS [None]
